FAERS Safety Report 7165882-1 (Version None)
Quarter: 2010Q4

REPORT INFORMATION
  Report Type: 
  Country: None (occurrence: None)
  Receive Date: 20101216
  Receipt Date: 20101202
  Transmission Date: 20110411
  Serious: Yes (Other)
  Sender: FDA-Public Use
  Company Number: GB-MYLANLABS-2010S1022240

PATIENT
  Age: 44 Year
  Sex: Male

DRUGS (2)
  1. FEXOFENADINE HCL [Suspect]
     Indication: ANGIOEDEMA
     Route: 048
     Dates: start: 20100923, end: 20101129
  2. IBUPROFEN [Concomitant]
     Indication: PRODUCT USED FOR UNKNOWN INDICATION

REACTIONS (2)
  - DIZZINESS [None]
  - TACHYCARDIA [None]
